FAERS Safety Report 4990699-3 (Version None)
Quarter: 2006Q1

REPORT INFORMATION
  Report Type: 
  Country: None (occurrence: None)
  Receive Date: 20060314
  Receipt Date: 20051207
  Transmission Date: 20060701
  Serious: No
  Sender: FDA-Public Use
  Company Number: 2005-02161

PATIENT
  Age: 48 Year
  Sex: Female
  Weight: 52.6 kg

DRUGS (11)
  1. VELCADE [Suspect]
     Indication: MULTIPLE MYELOMA
     Dosage: 1.30 MG/M2 ; 1.60 MG
     Dates: start: 20050920, end: 20051001
  2. VELCADE [Suspect]
     Indication: MULTIPLE MYELOMA
     Dosage: 1.30 MG/M2 ; 1.60 MG
     Dates: start: 20051104
  3. CELLCEPT [Concomitant]
  4. CYCLOSPORINE [Concomitant]
  5. PROTONIX [Concomitant]
  6. DIFLUCAN [Concomitant]
  7. COUMADIN [Concomitant]
  8. DALMANE [Concomitant]
  9. PERI-COLACE [Concomitant]
  10. COMBIPATCH [Concomitant]
  11. MIRALAX (MACROOL) [Concomitant]

REACTIONS (1)
  - DYSPNOEA [None]
